FAERS Safety Report 15553975 (Version 3)
Quarter: 2019Q1

REPORT INFORMATION
  Report Type: Report from Study
  Country: US (occurrence: US)
  Receive Date: 20181026
  Receipt Date: 20190118
  Transmission Date: 20190417
  Serious: Yes (Hospitalization, Other)
  Sender: FDA-Public Use
  Company Number: US-B.I. PHARMACEUTICALS,INC./RIDGEFIELD-2018-BI-051766

PATIENT
  Age: 72 Year
  Sex: Male

DRUGS (1)
  1. OFEV [Suspect]
     Active Substance: NINTEDANIB
     Indication: IDIOPATHIC PULMONARY FIBROSIS
     Route: 048
     Dates: start: 20180513, end: 20180903

REACTIONS (4)
  - Decreased appetite [Unknown]
  - Renal failure [Not Recovered/Not Resolved]
  - Oesophageal ulcer [Unknown]
  - Nausea [Unknown]

NARRATIVE: CASE EVENT DATE: 201808
